FAERS Safety Report 6257386-5 (Version None)
Quarter: 2009Q3

REPORT INFORMATION
  Report Type: 
  Country: None (occurrence: None)
  Receive Date: 20090701
  Receipt Date: 20090701
  Transmission Date: 20100115
  Serious: No
  Sender: FDA-Public Use
  Company Number: None

PATIENT
  Age: 82 Year
  Sex: Male
  Weight: 90.2658 kg

DRUGS (1)
  1. GLIMEPIRIDE [Suspect]
     Indication: DIABETES MELLITUS
     Dosage: 2MG TWICE DAILY OTHER
     Route: 050
     Dates: start: 20090619, end: 20090627

REACTIONS (5)
  - CHEST DISCOMFORT [None]
  - CHEST PAIN [None]
  - DYSPEPSIA [None]
  - INSOMNIA [None]
  - PRODUCT SUBSTITUTION ISSUE [None]
